FAERS Safety Report 7884295 (Version 4)
Quarter: 2012Q4

REPORT INFORMATION
  Report Type: 
  Country: US (occurrence: US)
  Receive Date: 20110404
  Receipt Date: 20121114
  Transmission Date: 20130627
  Serious: No
  Sender: FDA-Public Use
  Company Number: US-ASTRAZENECA-2011SE17484

PATIENT
  Age: 46 Year
  Sex: Female

DRUGS (4)
  1. NEXIUM [Suspect]
     Route: 048
     Dates: start: 20110427
  2. NAPROXEN [Concomitant]
     Indication: PAIN
  3. HYDROCODONE-ACETAMINOPHEN [Concomitant]
     Indication: PAIN
  4. HYDROXYZINE [Concomitant]
     Indication: PRURITUS

REACTIONS (7)
  - Gastric disorder [Unknown]
  - Gastrooesophageal reflux disease [Unknown]
  - Dyspepsia [Unknown]
  - Malaise [Unknown]
  - Flatulence [Unknown]
  - Headache [Unknown]
  - Drug dose omission [Unknown]
